FAERS Safety Report 5846240-6 (Version None)
Quarter: 2008Q3

REPORT INFORMATION
  Report Type: 
  Country: None (occurrence: None)
  Receive Date: 20080813
  Receipt Date: 20080729
  Transmission Date: 20090109
  Serious: Yes (Other)
  Sender: FDA-Public Use
  Company Number: 8035544

PATIENT
  Sex: 0

DRUGS (1)
  1. THEOPHYLLINE [Suspect]

REACTIONS (10)
  - CENTRAL NERVOUS SYSTEM LESION [None]
  - DIALYSIS [None]
  - ENCEPHALOPATHY [None]
  - HISTIOCYTOSIS HAEMATOPHAGIC [None]
  - HUMAN HERPESVIRUS 6 INFECTION [None]
  - INFANTILE SPASMS [None]
  - NERVOUS SYSTEM DISORDER [None]
  - PYREXIA [None]
  - RENAL FAILURE ACUTE [None]
  - STATUS EPILEPTICUS [None]
